FAERS Safety Report 8541027-8 (Version None)
Quarter: 2012Q3

REPORT INFORMATION
  Report Type: 
  Country: None (occurrence: None)
  Receive Date: 20120726
  Receipt Date: 20120719
  Transmission Date: 20120928
  Serious: Yes (Other)
  Sender: FDA-Public Use
  Company Number: CA-UCBSA-054122

PATIENT
  Age: 51 Year
  Sex: Female

DRUGS (4)
  1. LEVOTHYROXINE SODIUM [Concomitant]
     Indication: HYPOTHYROIDISM
     Route: 048
  2. CIMZIA [Suspect]
     Route: 058
     Dates: start: 20120319, end: 20120416
  3. VITAMIN D [Concomitant]
     Dates: end: 20120101
  4. CIMZIA [Suspect]
     Indication: RHEUMATOID ARTHRITIS
     Route: 058
     Dates: start: 20120430, end: 20120625

REACTIONS (4)
  - PSORIASIS [None]
  - PURPURA [None]
  - VASCULITIS [None]
  - INJECTION SITE DISCOLOURATION [None]
